FAERS Safety Report 18126888 (Version 1)
Quarter: 2020Q3

REPORT INFORMATION
  Report Type: Other
  Country: IT (occurrence: IT)
  Receive Date: 20200810
  Receipt Date: 20200810
  Transmission Date: 20201103
  Serious: Yes (Other)
  Sender: FDA-Public Use
  Company Number: IT-ROCHE-2654866

PATIENT

DRUGS (2)
  1. CAPECITABINE. [Suspect]
     Active Substance: CAPECITABINE
     Indication: ANAL SQUAMOUS CELL CARCINOMA
     Dosage: FOR 5 DAYS/WEEK
     Route: 048
  2. CISPLATIN. [Suspect]
     Active Substance: CISPLATIN
     Indication: ANAL SQUAMOUS CELL CARCINOMA
     Dosage: 70 MG/M2 (60 MG/M2 FOR PATIENTS }70 YEARS) EVERY 21 DAYS FOR TWO COURSES
     Route: 065

REACTIONS (11)
  - Mucosal inflammation [Unknown]
  - Reproductive toxicity [Unknown]
  - Asthenia [Unknown]
  - Gastrointestinal toxicity [Unknown]
  - Anaemia [Unknown]
  - Skin toxicity [Unknown]
  - Urinary tract toxicity [Unknown]
  - Leukopenia [Unknown]
  - Neutropenia [Unknown]
  - Thrombocytopenia [Unknown]
  - Mucosal toxicity [Unknown]
